FAERS Safety Report 4932547-3 (Version None)
Quarter: 2006Q1

REPORT INFORMATION
  Report Type: 
  Country: None (occurrence: None)
  Receive Date: 20060303
  Receipt Date: 20050816
  Transmission Date: 20060701
  Serious: Yes (Hospitalization, Disabling, Other)
  Sender: FDA-Public Use
  Company Number: US-MERCK-0508USA02905

PATIENT
  Age: 50 Year
  Sex: Female
  Weight: 73 kg

DRUGS (1)
  1. VIOXX [Suspect]
     Route: 048

REACTIONS (17)
  - BREAST MASS [None]
  - CEREBROVASCULAR ACCIDENT [None]
  - CEREBROVASCULAR DISORDER [None]
  - CERVICOBRACHIAL SYNDROME [None]
  - CHEST PAIN [None]
  - DEPRESSION [None]
  - DRUG INTOLERANCE [None]
  - FALL [None]
  - FIBROMYALGIA [None]
  - HEADACHE [None]
  - HIATUS HERNIA [None]
  - HYPERLIPIDAEMIA [None]
  - INSOMNIA [None]
  - MORTON'S NEUROMA [None]
  - PULMONARY GRANULOMA [None]
  - RIB FRACTURE [None]
  - UPPER RESPIRATORY TRACT INFECTION [None]
